FAERS Safety Report 8542465-X (Version None)
Quarter: 2012Q3

REPORT INFORMATION
  Report Type: 
  Country: None (occurrence: None)
  Receive Date: 20120726
  Receipt Date: 20110823
  Transmission Date: 20120928
  Serious: Yes (Other)
  Sender: FDA-Public Use
  Company Number: US-ASTRAZENECA-2009SE19031

PATIENT
  Age: 4640 Day
  Sex: Female

DRUGS (11)
  1. TRILEPTAL [Concomitant]
     Dates: start: 20070127
  2. SEROQUEL [Suspect]
     Route: 048
     Dates: start: 20060308
  3. CLONIDINE [Concomitant]
  4. ZYPREXA [Concomitant]
     Dates: start: 20070207
  5. ADDERALL 5 [Concomitant]
     Dates: start: 20060105
  6. STRATTERA [Concomitant]
     Dates: start: 20060131
  7. LAMICTAL [Concomitant]
     Dates: start: 20060208
  8. LAMICTAL [Concomitant]
     Dates: start: 20070127
  9. MIRALAX [Concomitant]
     Dates: start: 20060213
  10. GEODON [Concomitant]
     Dates: start: 20060119
  11. DEPAKOTE [Concomitant]
     Dates: start: 20060302

REACTIONS (5)
  - DIABETIC KETOACIDOSIS [None]
  - PANCREATITIS [None]
  - DIABETIC COMA [None]
  - DIABETES MELLITUS [None]
  - HYPERGLYCAEMIA [None]
